FAERS Safety Report 9479170 (Version 1)
Quarter: 2013Q3

REPORT INFORMATION
  Report Type: Report from Study
  Country: CA (occurrence: CA)
  Receive Date: 20130827
  Receipt Date: 20130827
  Transmission Date: 20140515
  Serious: Yes (Other)
  Sender: FDA-Public Use
  Company Number: CA-TEVA-427796USA

PATIENT
  Age: 49 Year
  Sex: Female

DRUGS (6)
  1. COPAXONE [Suspect]
     Indication: MULTIPLE SCLEROSIS
     Dates: start: 19980713
  2. ZANTAC [Concomitant]
  3. NEXIUM [Concomitant]
  4. ALESSE [Concomitant]
  5. NEURONTIN [Concomitant]
  6. PREVACID [Concomitant]

REACTIONS (1)
  - Choking [Unknown]
